FAERS Safety Report 9057449 (Version 1)
Quarter: 2013Q1

REPORT INFORMATION
  Report Type: Spontaneous
  Country: BR (occurrence: BR)
  Receive Date: 20130204
  Receipt Date: 20130204
  Transmission Date: 20140127
  Serious: Yes (Death, Hospitalization)
  Sender: FDA-Public Use
  Company Number: BR-PFIZER INC-2013042137

PATIENT
  Age: 87 Year
  Sex: Female
  Weight: 66 kg

DRUGS (2)
  1. XALATAN [Suspect]
     Dosage: 2 DROPS
     Route: 047
  2. ZOLOFT [Suspect]
     Dosage: 1 TABLET OF 50 MG DAILY
     Route: 048
     Dates: start: 20000301

REACTIONS (2)
  - Dementia Alzheimer^s type [Fatal]
  - Sepsis [Unknown]
